FAERS Safety Report 12229692 (Version 6)
Quarter: 2017Q4

REPORT INFORMATION
  Report Type: Spontaneous
  Country: US (occurrence: US)
  Receive Date: 20160401
  Receipt Date: 20171011
  Transmission Date: 20180320
  Serious: Yes (Death, Hospitalization)
  Sender: FDA-Public Use
  Company Number: US-JNJFOC-20160307113

PATIENT
  Age: 77 Year
  Sex: Male

DRUGS (6)
  1. METOPROLOL. [Concomitant]
     Active Substance: METOPROLOL
     Indication: PRODUCT USED FOR UNKNOWN INDICATION
     Route: 065
  2. ALLOPURINOL. [Concomitant]
     Active Substance: ALLOPURINOL
     Indication: PRODUCT USED FOR UNKNOWN INDICATION
     Route: 065
  3. XARELTO [Suspect]
     Active Substance: RIVAROXABAN
     Indication: CEREBROVASCULAR ACCIDENT PROPHYLAXIS
     Route: 048
     Dates: start: 20120816, end: 20140305
  4. XARELTO [Suspect]
     Active Substance: RIVAROXABAN
     Indication: ATRIAL FIBRILLATION
     Route: 048
     Dates: start: 20120816, end: 20140305
  5. LEVOTHYROXINE. [Concomitant]
     Active Substance: LEVOTHYROXINE
     Indication: PRODUCT USED FOR UNKNOWN INDICATION
     Route: 065
  6. NAMENDA [Concomitant]
     Active Substance: MEMANTINE HYDROCHLORIDE
     Indication: PRODUCT USED FOR UNKNOWN INDICATION
     Route: 065

REACTIONS (4)
  - Gastrointestinal haemorrhage [Unknown]
  - Haemorrhagic stroke [Unknown]
  - Ischaemic stroke [Unknown]
  - Septic shock [Fatal]

NARRATIVE: CASE EVENT DATE: 201401
